FAERS Safety Report 4883105-0 (Version None)
Quarter: 2006Q1

REPORT INFORMATION
  Report Type: 
  Country: None (occurrence: None)
  Receive Date: 20060117
  Receipt Date: 20060117
  Transmission Date: 20060701
  Serious: Yes (Hospitalization)
  Sender: FDA-Public Use
  Company Number: None

PATIENT
  Sex: Female
  Weight: 113 kg

DRUGS (6)
  1. THALIDOMIDE [Suspect]
     Indication: SMALL CELL LUNG CANCER STAGE UNSPECIFIED
     Dosage: 200 MG.   DAILY   PO
     Route: 048
     Dates: start: 20050819, end: 20050906
  2. HUMULIN 70/30 [Concomitant]
  3. GLIPIZIDE [Concomitant]
  4. METFORMIN HCL [Concomitant]
  5. LEVOXYL [Concomitant]
  6. ASPIRIN [Concomitant]

REACTIONS (7)
  - ACUTE PRERENAL FAILURE [None]
  - ANAEMIA [None]
  - DRUG TOXICITY [None]
  - FALL [None]
  - HEAD INJURY [None]
  - METASTASES TO SPINE [None]
  - NEUROPATHY PERIPHERAL [None]
